FAERS Safety Report 5358007-6 (Version None)
Quarter: 2007Q2

REPORT INFORMATION
  Report Type: 
  Country: None (occurrence: None)
  Receive Date: 20070530
  Receipt Date: 20070227
  Transmission Date: 20071010
  Serious: Yes (Other)
  Sender: FDA-Public Use
  Company Number: US200612000891

PATIENT
  Age: 41 Year
  Sex: Female
  Weight: 160.1 kg

DRUGS (8)
  1. ZYPREXA [Suspect]
     Dosage: SEE IMAGE
     Dates: start: 19970501, end: 20050301
  2. ZYPREXA [Suspect]
     Dosage: SEE IMAGE
     Dates: start: 19970501, end: 20050301
  3. ABILIFY [Concomitant]
  4. RISPERIDONE [Concomitant]
  5. QUETIAPINE FUMARATE [Concomitant]
  6. ZIPRASIDONE HCL [Concomitant]
  7. DIVALPROEX (VALPROATE SEMISODIUM) [Concomitant]
  8. MEDROXYPROGESTERONE [Concomitant]

REACTIONS (8)
  - BLOOD CHOLESTEROL INCREASED [None]
  - DIABETES MELLITUS [None]
  - DIABETIC COMA [None]
  - DIABETIC KETOACIDOSIS [None]
  - GLYCOSURIA [None]
  - HYPERGLYCAEMIA [None]
  - METABOLIC SYNDROME [None]
  - PANCREATITIS [None]
